FAERS Safety Report 16767911 (Version 7)
Quarter: 2019Q4

REPORT INFORMATION
  Report Type: Spontaneous
  Country: JP (occurrence: JP)
  Receive Date: 20190903
  Receipt Date: 20191028
  Transmission Date: 20200122
  Serious: Yes (Death, Hospitalization)
  Sender: FDA-Public Use
  Company Number: JP-JNJFOC-20190827062

PATIENT
  Age: 81 Year
  Sex: Male
  Weight: 59 kg

DRUGS (11)
  1. DEXAMETHASONE. [Concomitant]
     Active Substance: DEXAMETHASONE
     Indication: PROSTATE CANCER
     Route: 048
     Dates: end: 20190819
  2. GONAX [Concomitant]
     Active Substance: DEGARELIX
     Route: 058
  3. HALFDIGOXIN [Concomitant]
     Active Substance: DIGOXIN
     Indication: ATRIAL FLUTTER
     Route: 048
     Dates: start: 201403, end: 20190906
  4. REBAMIPIDE [Concomitant]
     Active Substance: REBAMIPIDE
     Indication: CHRONIC GASTRITIS
     Route: 048
     Dates: end: 20190819
  5. SILODOSIN. [Concomitant]
     Active Substance: SILODOSIN
     Indication: BENIGN PROSTATIC HYPERPLASIA
     Route: 048
     Dates: end: 20190819
  6. ERLEADA [Suspect]
     Active Substance: APALUTAMIDE
     Indication: PROSTATE CANCER
     Dosage: IN THE EVENING
     Route: 048
     Dates: start: 20190710, end: 20190727
  7. DABIGATRAN ETEXILATE METHANESULFONATE [Concomitant]
     Active Substance: DABIGATRAN
     Indication: ATRIAL FLUTTER
     Route: 048
     Dates: end: 20190819
  8. XARELTO [Concomitant]
     Active Substance: RIVAROXABAN
     Indication: PRODUCT USED FOR UNKNOWN INDICATION
     Dosage: PERORAL MEDICINE
     Route: 048
  9. PRAZAXA [Concomitant]
     Active Substance: DABIGATRAN ETEXILATE MESYLATE
     Route: 048
  10. ERLEADA [Suspect]
     Active Substance: APALUTAMIDE
     Route: 048
     Dates: start: 20190729
  11. ERLEADA [Suspect]
     Active Substance: APALUTAMIDE
     Dosage: IN THE EVENING
     Route: 048
     Dates: start: 20190815, end: 20190818

REACTIONS (4)
  - Muscular weakness [Not Recovered/Not Resolved]
  - General physical condition abnormal [Not Recovered/Not Resolved]
  - Oedema [Not Recovered/Not Resolved]
  - Interstitial lung disease [Fatal]

NARRATIVE: CASE EVENT DATE: 201907
